FAERS Safety Report 23413806 (Version 1)
Quarter: 2024Q1

REPORT INFORMATION
  Report Type: Spontaneous
  Country: US (occurrence: US)
  Receive Date: 20240117
  Receipt Date: 20240117
  Transmission Date: 20240410
  Serious: No
  Sender: FDA-Public Use
  Company Number: US-NOVOPROD-1118299

PATIENT
  Sex: Male

DRUGS (1)
  1. OZEMPIC [Suspect]
     Active Substance: SEMAGLUTIDE
     Indication: Product used for unknown indication
     Dosage: 1 MG
     Route: 058

REACTIONS (7)
  - Illness [Unknown]
  - Increased appetite [Unknown]
  - Gait disturbance [Unknown]
  - Weight decreased [Unknown]
  - Diarrhoea [Unknown]
  - Dyspepsia [Unknown]
  - Nausea [Unknown]
